FAERS Safety Report 7213636-X (Version None)
Quarter: 2011Q1

REPORT INFORMATION
  Report Type: 
  Country: None (occurrence: None)
  Receive Date: 20110106
  Receipt Date: 20101227
  Transmission Date: 20110831
  Serious: Yes (Hospitalization)
  Sender: FDA-Public Use
  Company Number: NL-MEDIMMUNE-MEDI-0012127

PATIENT
  Sex: Male
  Weight: 1.011 kg

DRUGS (4)
  1. ACENOCOUMAROL [Concomitant]
     Indication: ANTICOAGULANT THERAPY
  2. SYNAGIS [Suspect]
     Route: 030
     Dates: start: 20101004, end: 20101129
  3. SYNAGIS [Suspect]
     Route: 030
     Dates: start: 20101227
  4. FUROSEMIDE [Concomitant]

REACTIONS (3)
  - INFANTILE SPITTING UP [None]
  - PYREXIA [None]
  - HAEMOGLOBIN DECREASED [None]
